FAERS Safety Report 4898278-3 (Version None)
Quarter: 2006Q1

REPORT INFORMATION
  Report Type: 
  Country: None (occurrence: None)
  Receive Date: 20060127
  Receipt Date: 20060113
  Transmission Date: 20060701
  Serious: Yes (Death, Other)
  Sender: FDA-Public Use
  Company Number: US200601002136

PATIENT
  Age: 35 Year
  Sex: Male

DRUGS (3)
  1. ZYPREXA [Suspect]
     Indication: AGITATION
     Dosage: 5.4 MG, 4/D
     Dates: start: 20060112
  2. ZYPREXA ZYDIS [Suspect]
     Indication: AGITATION
     Dosage: 5 MG, DAILY (1/D)
     Dates: start: 20060112
  3. ATIVAN [Concomitant]

REACTIONS (2)
  - CONVULSION [None]
  - PRESCRIBED OVERDOSE [None]
